FAERS Safety Report 6910977-8 (Version None)
Quarter: 2010Q3

REPORT INFORMATION
  Report Type: 
  Country: None (occurrence: None)
  Receive Date: 20100806
  Receipt Date: 20100730
  Transmission Date: 20110219
  Serious: Yes (Hospitalization)
  Sender: FDA-Public Use
  Company Number: A0865648A

PATIENT
  Age: 44 Year
  Sex: Female

DRUGS (8)
  1. AVANDIA [Suspect]
     Dosage: 2MG TWICE PER DAY
     Route: 048
  2. AVANDAMET [Suspect]
     Indication: DIABETES MELLITUS
     Route: 048
     Dates: end: 20050101
  3. METFORMIN HCL [Concomitant]
  4. TOPAMAX [Concomitant]
  5. PRAVACHOL [Concomitant]
  6. ACIPHEX [Concomitant]
  7. EXFORGE [Concomitant]
  8. LISINOPRIL [Concomitant]

REACTIONS (2)
  - CARDIAC DISORDER [None]
  - CARDIAC FAILURE CONGESTIVE [None]
